FAERS Safety Report 8304334-X (Version None)
Quarter: 2012Q2

REPORT INFORMATION
  Report Type: 
  Country: None (occurrence: None)
  Receive Date: 20120423
  Receipt Date: 20120423
  Transmission Date: 20120825
  Serious: Yes (Other)
  Sender: FDA-Public Use
  Company Number: None

PATIENT
  Age: 36 Year
  Sex: Female
  Weight: 72.574 kg

DRUGS (1)
  1. MIRENA [Suspect]

REACTIONS (1)
  - SUPPRESSED LACTATION [None]
